FAERS Safety Report 18040746 (Version 4)
Quarter: 2020Q3

REPORT INFORMATION
  Report Type: Report from Study
  Country: US (occurrence: US)
  Receive Date: 20200717
  Receipt Date: 20200918
  Transmission Date: 20201103
  Serious: Yes (Other)
  Sender: FDA-Public Use
  Company Number: NVSC2020US200389

PATIENT
  Sex: Female

DRUGS (2)
  1. ENTRESTO [Suspect]
     Active Substance: SACUBITRIL\VALSARTAN
     Route: 048
  2. ENTRESTO [Suspect]
     Active Substance: SACUBITRIL\VALSARTAN
     Indication: CARDIAC FAILURE
     Dosage: 97103 MG, BID
     Route: 048

REACTIONS (9)
  - COVID-19 [Unknown]
  - Vomiting [Unknown]
  - Abdominal discomfort [Unknown]
  - Cough [Unknown]
  - Dyspnoea [Unknown]
  - Diarrhoea [Unknown]
  - Fluid retention [Unknown]
  - Product dose omission issue [Unknown]
  - Nausea [Unknown]
